FAERS Safety Report 9082631 (Version 4)
Quarter: 2013Q2

REPORT INFORMATION
  Report Type: Spontaneous
  Country: US (occurrence: US)
  Receive Date: 20130218
  Receipt Date: 20130423
  Transmission Date: 20140414
  Serious: No
  Sender: FDA-Public Use
  Company Number: US-PFIZER INC-2013057910

PATIENT
  Age: 72 Year
  Sex: Male

DRUGS (1)
  1. VFEND [Suspect]
     Indication: NEOPLASM MALIGNANT
     Dosage: 200 MG, 2X/DAY
     Dates: start: 20121113

REACTIONS (1)
  - Drug ineffective for unapproved indication [Unknown]
